FAERS Safety Report 7419391-2 (Version None)
Quarter: 2011Q2

REPORT INFORMATION
  Report Type: 
  Country: None (occurrence: None)
  Receive Date: 20110415
  Receipt Date: 20110413
  Transmission Date: 20111010
  Serious: Yes (Hospitalization)
  Sender: FDA-Public Use
  Company Number: DE-BAYER-2011-030005

PATIENT
  Age: 82 Year
  Sex: Male
  Weight: 73 kg

DRUGS (2)
  1. ULTRAVIST 150 [Suspect]
     Indication: CATHETERISATION CARDIAC
     Dosage: 200 ML, ONCE
     Route: 013
     Dates: start: 20110330, end: 20110330
  2. ULTRAVIST 150 [Suspect]
     Indication: PERCUTANEOUS CORONARY INTERVENTION

REACTIONS (1)
  - DIPLOPIA [None]
